FAERS Safety Report 16705840 (Version 1)
Quarter: 2019Q4

REPORT INFORMATION
  Report Type: Spontaneous
  Country: US (occurrence: US)
  Receive Date: 20190814
  Receipt Date: 20190814
  Transmission Date: 20200122
  Serious: No
  Sender: FDA-Public Use
  Company Number: None

PATIENT
  Age: 34 Year
  Sex: Male
  Weight: 121.5 kg

DRUGS (1)
  1. CLEAR EYES MAXIMUM REDNESS RELIEF [Suspect]
     Active Substance: GLYCERIN\NAPHAZOLINE HYDROCHLORIDE
     Indication: EYE IRRITATION
     Dates: start: 20170531, end: 20190731

REACTIONS (3)
  - Recalled product administered [None]
  - Corneal infection [None]
  - Corneal abrasion [None]

NARRATIVE: CASE EVENT DATE: 20190616
